FAERS Safety Report 9803492 (Version 1)
Quarter: 2014Q1

REPORT INFORMATION
  Report Type: Spontaneous
  Country: GB (occurrence: None)
  Receive Date: 20140103
  Receipt Date: 20140103
  Transmission Date: 20141002
  Serious: Yes (Hospitalization)
  Sender: FDA-Public Use
  Company Number: GB-DEXPHARM-20131180

PATIENT
  Age: 86 Year
  Sex: 0

DRUGS (1)
  1. OMEPRAZOLE [Suspect]
     Dosage: 20 MG MILLIGRAM(S) SEP. DOSAGES / INTERVAL: 1 IN 1 DAYS
     Route: 048

REACTIONS (1)
  - Clostridium difficile infection [None]
